FAERS Safety Report 5027930-4 (Version None)
Quarter: 2006Q2

REPORT INFORMATION
  Report Type: 
  Country: None (occurrence: None)
  Receive Date: 20060616
  Receipt Date: 20060613
  Transmission Date: 20061013
  Serious: Yes (Hospitalization)
  Sender: FDA-Public Use
  Company Number: 2006CG01040

PATIENT
  Age: 63 Year
  Sex: Female

DRUGS (1)
  1. ZOMIG [Suspect]
     Indication: MIGRAINE
     Dosage: ONE TO TWO TABLETS PER DAY
     Route: 048
     Dates: start: 20030101

REACTIONS (1)
  - MIGRAINE [None]
